FAERS Safety Report 12756749 (Version 5)
Quarter: 2017Q3

REPORT INFORMATION
  Report Type: Spontaneous
  Country: JP (occurrence: JP)
  Receive Date: 20160917
  Receipt Date: 20170708
  Transmission Date: 20171127
  Serious: Yes (Hospitalization, Other)
  Sender: FDA-Public Use
  Company Number: JP-AMGEN-JPNSP2016122122

PATIENT
  Age: 41 Year
  Sex: Male
  Weight: 46 kg

DRUGS (7)
  1. NESP [Suspect]
     Active Substance: DARBEPOETIN ALFA
     Dosage: 120 MUG, QWK
     Route: 042
     Dates: start: 20160820
  2. LANTUS [Concomitant]
     Active Substance: INSULIN GLARGINE
     Indication: TYPE 1 DIABETES MELLITUS
     Dosage: 6 IU, QD
     Route: 058
  3. NESP [Suspect]
     Active Substance: DARBEPOETIN ALFA
     Dosage: 180 MUG, QWK
     Route: 042
     Dates: start: 20160910
  4. NESP [Suspect]
     Active Substance: DARBEPOETIN ALFA
     Indication: NEPHROGENIC ANAEMIA
     Dosage: 20 MUG, QWK
     Route: 042
     Dates: start: 20090116, end: 20160813
  5. NESP [Suspect]
     Active Substance: DARBEPOETIN ALFA
     Dosage: 40 MUG, QWK
     Route: 042
     Dates: start: 20160813, end: 20160813
  6. CALTAN [Concomitant]
     Active Substance: CALCIUM CARBONATE
     Indication: HYPERPHOSPHATAEMIA
     Dosage: 500 MG, TID
     Route: 048
  7. HUMALOG [Concomitant]
     Active Substance: INSULIN LISPRO
     Indication: TYPE 1 DIABETES MELLITUS
     Dosage: 8 IU, BID
     Route: 058

REACTIONS (3)
  - Drug ineffective [Recovered/Resolved]
  - Aspergillus infection [Not Recovered/Not Resolved]
  - Gastrointestinal perforation [Recovered/Resolved]

NARRATIVE: CASE EVENT DATE: 20140708
